FAERS Safety Report 4796485-1 (Version None)
Quarter: 2005Q3

REPORT INFORMATION
  Report Type: 
  Country: None (occurrence: None)
  Receive Date: 20050916
  Receipt Date: 20041130
  Transmission Date: 20060218
  Serious: Yes (Other)
  Sender: FDA-Public Use
  Company Number: US-JNJFOC-20041007504

PATIENT
  Age: 42 Year
  Sex: Female
  Weight: 69.8539 kg

DRUGS (4)
  1. TOPAMAX [Suspect]
     Indication: MIGRAINE
     Dosage: 25 MG, IN 1 DAY, ORAL
     Route: 048
     Dates: start: 20040909, end: 20040927
  2. MIGRANAL (SPRAY) DIHYDROERGOTAMINE MESILATE [Concomitant]
  3. BACLOFEN [Concomitant]
  4. EXCEDRIN [Concomitant]

REACTIONS (1)
  - ANGLE CLOSURE GLAUCOMA [None]
